FAERS Safety Report 8826402 (Version 1)
Quarter: 2012Q4

REPORT INFORMATION
  Report Type: 
  Country: US (occurrence: US)
  Receive Date: 20121005
  Receipt Date: 20121005
  Transmission Date: 20130627
  Serious: No
  Sender: FDA-Public Use
  Company Number: US-B.I. PHARMACEUTICALS,INC./RIDGEFIELD-2012-BP-24211BP

PATIENT
  Age: 49 Year
  Sex: Male

DRUGS (11)
  1. SPIRIVA [Suspect]
     Indication: CHRONIC OBSTRUCTIVE PULMONARY DISEASE
     Dosage: 18 mcg
     Route: 048
     Dates: start: 20121002, end: 20121002
  2. SPIRIVA [Suspect]
     Dosage: 18 mcg
     Dates: start: 201204
  3. COMBIVENT [Suspect]
     Indication: CHRONIC OBSTRUCTIVE PULMONARY DISEASE
     Route: 055
     Dates: start: 20120925
  4. METOPROLOL [Concomitant]
     Indication: HYPERTENSION
     Dosage: 100 mg
     Route: 048
     Dates: start: 2009
  5. GABAPENTIN [Concomitant]
     Indication: NEURALGIA
     Dosage: 2700 mg
     Route: 048
     Dates: start: 2008
  6. ALPRAZOLAM [Concomitant]
     Indication: ANXIETY
     Dosage: 1 mg
     Route: 048
     Dates: start: 2011
  7. LOSTATIN [Concomitant]
     Indication: BLOOD CHOLESTEROL INCREASED
     Dosage: 80 mg
     Route: 048
     Dates: start: 2009
  8. SERTRALINE [Concomitant]
     Indication: DEPRESSION
     Dosage: 150 mg
     Route: 048
     Dates: start: 2009
  9. MORPHINE TITRATE [Concomitant]
     Indication: PROCTALGIA
     Dosage: 60 mg
     Route: 048
     Dates: start: 2011
  10. OXYCODONE [Concomitant]
     Indication: PROCTALGIA
     Dosage: 180 mg
     Route: 048
  11. NORTRIPTYLINE [Concomitant]
     Indication: INSOMNIA
     Dosage: 10 mg
     Route: 048
     Dates: start: 2012

REACTIONS (4)
  - Incorrect route of drug administration [Not Recovered/Not Resolved]
  - Visual acuity reduced [Not Recovered/Not Resolved]
  - Increased upper airway secretion [Not Recovered/Not Resolved]
  - Skin discolouration [Recovered/Resolved]
